FAERS Safety Report 8322036-0 (Version None)
Quarter: 2012Q2

REPORT INFORMATION
  Report Type: 
  Country: None (occurrence: None)
  Receive Date: 20120430
  Receipt Date: 20120419
  Transmission Date: 20120825
  Serious: Yes (Other)
  Sender: FDA-Public Use
  Company Number: US-ROCHE-1061670

PATIENT
  Sex: Female
  Weight: 69.462 kg

DRUGS (2)
  1. ABRAXANE [Concomitant]
     Indication: BREAST CANCER
     Dosage: DOSE: UNKNOWN
     Route: 042
  2. HERCEPTIN [Suspect]
     Indication: BREAST CANCER
     Dosage: DOSE: UNKNOWN
     Route: 042
     Dates: start: 20120123, end: 20120305

REACTIONS (2)
  - CARDIOMYOPATHY [None]
  - WHITE BLOOD CELL COUNT DECREASED [None]
